FAERS Safety Report 4488538-2 (Version None)
Quarter: 2004Q4

REPORT INFORMATION
  Report Type: 
  Country: None (occurrence: None)
  Receive Date: 20041028
  Receipt Date: 20041028
  Transmission Date: 20050328
  Serious: No
  Sender: FDA-Public Use
  Company Number: None

PATIENT
  Sex: Male

DRUGS (4)
  1. LEVOTHYROXINE 0.2 MG DAILY [Suspect]
     Indication: HYPOTHYROIDISM
     Dosage: 0.2 MG DAILY
     Dates: start: 19991026
  2. LEVOTHYROXINE 0.2 MG DAILY [Suspect]
     Indication: THYROID NEOPLASM
     Dosage: 0.2 MG DAILY
     Dates: start: 19991026
  3. LEVOXYL [Suspect]
     Indication: HYPOTHYROIDISM
     Dosage: 0.2 MG DAILY
  4. LEVOXYL [Suspect]
     Indication: THYROID NEOPLASM
     Dosage: 0.2 MG DAILY

REACTIONS (2)
  - DRUG INEFFECTIVE [None]
  - FATIGUE [None]
